FAERS Safety Report 5046351-1 (Version None)
Quarter: 2006Q2

REPORT INFORMATION
  Report Type: 
  Country: None (occurrence: None)
  Receive Date: 20060629
  Receipt Date: 20060615
  Transmission Date: 20061013
  Serious: Yes (Other)
  Sender: FDA-Public Use
  Company Number: A-US2006-12022

PATIENT
  Age: 80 Year
  Sex: Female
  Weight: 71.7 kg

DRUGS (12)
  1. TRACLEER [Suspect]
     Indication: PULMONARY HYPERTENSION
     Dosage: 62.5 MG, BID, ORAL
     Route: 048
     Dates: start: 20060209, end: 20060220
  2. FUROSEMIDE [Concomitant]
  3. CELEBREX [Concomitant]
  4. METOPROLOL (METOPROLOL) [Concomitant]
  5. NORVASC [Concomitant]
  6. LANOXIN [Concomitant]
  7. LORAZEPAM [Concomitant]
  8. WARFARIN SODIUM [Concomitant]
  9. OCUVITE (ASCORBIC ACID, TOCOPHEROL, RETINOL) [Concomitant]
  10. CALCIUM (CALCIUM) [Concomitant]
  11. ALBUTEROL [Concomitant]
  12. OXYGEN (OXYGEN) [Concomitant]

REACTIONS (4)
  - ALOPECIA [None]
  - DYSPNOEA EXACERBATED [None]
  - FLUID OVERLOAD [None]
  - PALPITATIONS [None]
